FAERS Safety Report 5485068-6 (Version None)
Quarter: 2007Q4

REPORT INFORMATION
  Report Type: 
  Country: None (occurrence: None)
  Receive Date: 20071015
  Receipt Date: 20071009
  Transmission Date: 20080405
  Serious: Yes (Other)
  Sender: FDA-Public Use
  Company Number: PHEH2007US12167

PATIENT
  Age: 71 Year
  Sex: Female

DRUGS (5)
  1. ZOMETA [Suspect]
     Indication: MULTIPLE MYELOMA
  2. HYDROMORPHONE HCL [Concomitant]
  3. HYDROCODONE [Concomitant]
  4. PHENERGAN HCL [Concomitant]
  5. MORPHINE [Concomitant]
     Route: 048

REACTIONS (6)
  - BONE DISORDER [None]
  - MASTICATION DISORDER [None]
  - ORAL DISORDER [None]
  - OSTEONECROSIS [None]
  - PAIN IN JAW [None]
  - WEIGHT DECREASED [None]
